FAERS Safety Report 4482324-5 (Version None)
Quarter: 2004Q4

REPORT INFORMATION
  Report Type: 
  Country: None (occurrence: None)
  Receive Date: 20041022
  Receipt Date: 20040820
  Transmission Date: 20050328
  Serious: Yes (Hospitalization)
  Sender: FDA-Public Use
  Company Number: JP-ROCHE-378207

PATIENT
  Age: 69 Year
  Sex: Male
  Weight: 68 kg

DRUGS (10)
  1. PEGASYS [Suspect]
     Route: 058
     Dates: start: 20040302
  2. DICLOFENAC SODIUM [Suspect]
     Indication: PYREXIA
     Dosage: ROUTE REPORTED AS SR.
     Route: 050
     Dates: start: 20040629
  3. AMLODIN [Concomitant]
     Indication: HYPERTENSION
     Route: 048
     Dates: start: 20030704
  4. KM [Concomitant]
     Indication: ENTEROCOLITIS
     Route: 048
     Dates: start: 20040618, end: 20040620
  5. SCOPOLIA EXTRACT [Concomitant]
     Indication: ENTEROCOLITIS
     Route: 048
     Dates: start: 20040618, end: 20040620
  6. TANNALBIN [Concomitant]
     Indication: ENTEROCOLITIS
     Route: 048
     Dates: start: 20040618, end: 20040620
  7. NAFTOPIDIL [Concomitant]
     Dosage: TRADE NAME REPORTED AS FLIVAS.
     Route: 048
     Dates: start: 20040715, end: 20040901
  8. EVIPROSTAT [Concomitant]
     Route: 048
     Dates: start: 20040715
  9. BLADDERON [Concomitant]
     Route: 048
     Dates: start: 20040715
  10. UNKNOWN DRUG [Concomitant]
     Dosage: DRUG NAME REPORTED AS NARCOLEPTIC.
     Route: 048
     Dates: start: 20040715

REACTIONS (6)
  - BUNDLE BRANCH BLOCK RIGHT [None]
  - ELECTROCARDIOGRAM ABNORMAL [None]
  - ELECTROCARDIOGRAM ST-T SEGMENT ABNORMAL [None]
  - FEELING ABNORMAL [None]
  - PRODUCTIVE COUGH [None]
  - VENTRICULAR EXTRASYSTOLES [None]
